FAERS Safety Report 7934572-7 (Version None)
Quarter: 2011Q4

REPORT INFORMATION
  Report Type: 
  Country: None (occurrence: None)
  Receive Date: 20111122
  Receipt Date: 20111107
  Transmission Date: 20120403
  Serious: Yes (Other)
  Sender: FDA-Public Use
  Company Number: GB-WATSON-2011-18879

PATIENT
  Sex: Female

DRUGS (1)
  1. CRINONE [Suspect]
     Indication: COMPLICATION OF PREGNANCY
     Dosage: UNK
     Route: 065

REACTIONS (1)
  - ABORTION SPONTANEOUS [None]
